FAERS Safety Report 9753939 (Version 10)
Quarter: 2014Q4

REPORT INFORMATION
  Report Type: Report from Study
  Country: JP (occurrence: JP)
  Receive Date: 20131213
  Receipt Date: 20141126
  Transmission Date: 20150529
  Serious: Yes (Hospitalization, Other)
  Sender: FDA-Public Use
  Company Number: PHHY2013JP141578

PATIENT
  Age: 56 Year
  Sex: Female
  Weight: 44 kg

DRUGS (24)
  1. CERTICAN [Suspect]
     Active Substance: EVEROLIMUS
     Indication: OFF LABEL USE
     Dosage: 0.5 MG, QD
     Route: 048
     Dates: start: 20131015, end: 20140114
  2. ACTONEL [Concomitant]
     Active Substance: RISEDRONATE SODIUM
     Indication: BONE DENSITY DECREASED
     Dosage: 17.5 MG, QD
     Route: 048
  3. SELOKEN [Concomitant]
     Active Substance: METOPROLOL
     Indication: HYPERTENSION
     Dosage: 20 MG, UNK
     Route: 048
  4. PLATIBIT [Concomitant]
     Indication: BONE DENSITY DECREASED
     Dosage: 0.3 UG, UNK
     Route: 048
  5. PURSENNIDE [Concomitant]
     Active Substance: SENNOSIDES A AND B
     Indication: CONSTIPATION
     Dosage: 36 MG, UNK
     Route: 048
  6. PREDONINE [Concomitant]
     Active Substance: PREDNISOLONE\PREDNISOLONE ACETATE\PREDNISOLONE SODIUM SUCCINATE
     Indication: RENAL TRANSPLANT
     Dosage: 5 MG, UNK
     Route: 048
     Dates: start: 20130927
  7. CERTICAN [Suspect]
     Active Substance: EVEROLIMUS
     Indication: TYPE 1 DIABETES MELLITUS
     Dosage: 1 MG, QD
     Route: 048
     Dates: start: 20130430, end: 20131014
  8. MEDROL [Suspect]
     Active Substance: METHYLPREDNISOLONE
     Dosage: 2 MG, QD
     Route: 048
     Dates: start: 20130618, end: 20130926
  9. CELLCEPT [Concomitant]
     Active Substance: MYCOPHENOLATE MOFETIL\MYCOPHENOLATE MOFETIL HYDROCHLORIDE
     Indication: RENAL TRANSPLANT
     Dosage: 500 MG, UNK
     Route: 048
  10. PLATIBIT [Concomitant]
     Dosage: 0.25 UG, UNK
     Route: 048
  11. CERTICAN [Suspect]
     Active Substance: EVEROLIMUS
     Indication: RENAL TRANSPLANT
     Dosage: 1 MG, QD
     Route: 048
  12. MEDROL [Suspect]
     Active Substance: METHYLPREDNISOLONE
     Indication: RENAL TRANSPLANT
     Dosage: 4 MG, QD
     Route: 048
  13. SAIREITO                           /08000901/ [Suspect]
     Active Substance: HERBALS
     Indication: PRODUCT USED FOR UNKNOWN INDICATION
     Route: 065
  14. CELLCEPT [Concomitant]
     Active Substance: MYCOPHENOLATE MOFETIL\MYCOPHENOLATE MOFETIL HYDROCHLORIDE
     Indication: IMMUNOSUPPRESSION
     Dosage: 500 MG, UNK
     Route: 048
  15. HUMALOG [Concomitant]
     Active Substance: INSULIN LISPRO
     Indication: DIABETES MELLITUS
     Dosage: 3 ML, UNK
     Route: 065
  16. LIPOVAS//SIMVASTATIN [Concomitant]
     Indication: HYPERLIPIDAEMIA
     Dosage: 10 MG, UNK
     Route: 048
  17. MEDROL [Suspect]
     Active Substance: METHYLPREDNISOLONE
     Dosage: 4 MG, QD
     Route: 048
     Dates: start: 20130430, end: 20130617
  18. BAYASPIRIN [Concomitant]
     Active Substance: ASPIRIN
     Indication: DIABETES MELLITUS
     Dosage: 100 MG, UNK
     Route: 048
  19. PREDOHAN [Concomitant]
     Active Substance: PREDNISOLONE
     Indication: IMMUNOSUPPRESSION
  20. SENNOSIDE [Concomitant]
     Active Substance: SENNOSIDES
     Indication: CONSTIPATION
     Dosage: 36 MG, UNK
     Route: 048
  21. PREDOHAN [Concomitant]
     Active Substance: PREDNISOLONE
     Indication: RENAL TRANSPLANT
     Dosage: 5 MG, UNK
     Route: 048
     Dates: start: 20130927
  22. CALSLOT [Concomitant]
     Active Substance: MANIDIPINE HYDROCHLORIDE
     Indication: HYPERTENSION
     Dosage: 5 MG, UNK
     Route: 048
  23. CALSLOT [Concomitant]
     Active Substance: MANIDIPINE HYDROCHLORIDE
     Dosage: 20 MG, UNK
     Route: 048
  24. RENIVACE [Concomitant]
     Active Substance: ENALAPRIL
     Indication: HYPERTENSION
     Route: 048

REACTIONS (7)
  - Hyponatraemia [Recovered/Resolved]
  - Pseudoaldosteronism [Recovered/Resolved]
  - Protein urine [Not Recovered/Not Resolved]
  - Oedema peripheral [Recovering/Resolving]
  - Immunosuppressant drug level decreased [Recovered/Resolved]
  - Shock [Recovered/Resolved]
  - Adrenal insufficiency [Recovered/Resolved]

NARRATIVE: CASE EVENT DATE: 20130521
